FAERS Safety Report 6457420-3 (Version None)
Quarter: 2009Q4

REPORT INFORMATION
  Report Type: 
  Country: None (occurrence: None)
  Receive Date: 20091125
  Receipt Date: 20091113
  Transmission Date: 20100525
  Serious: Yes (Hospitalization, Other)
  Sender: FDA-Public Use
  Company Number: US-JNJFOC-20091105975

PATIENT
  Sex: Male
  Weight: 92.99 kg

DRUGS (6)
  1. RISPERDAL [Suspect]
     Indication: SCHIZOPHRENIA
     Route: 048
  2. IBUPROFEN [Concomitant]
     Indication: ARTHRITIS
     Route: 065
  3. AMBIEN [Concomitant]
     Indication: INSOMNIA
     Dosage: AS NEEDED
     Route: 048
  4. ATIVAN [Concomitant]
     Dosage: AS REQUIRED
     Route: 048
  5. ATIVAN [Concomitant]
     Dosage: AS REQUIRED
     Route: 048
  6. ATIVAN [Concomitant]
     Indication: AGITATION
     Dosage: AS REQUIRED
     Route: 048

REACTIONS (6)
  - CHEST PAIN [None]
  - HEADACHE [None]
  - PNEUMONIA [None]
  - SYNCOPE [None]
  - TRANSAMINASES INCREASED [None]
  - UPPER RESPIRATORY TRACT INFECTION [None]
